FAERS Safety Report 11580763 (Version 5)
Quarter: 2016Q1

REPORT INFORMATION
  Report Type: Report from Study
  Country: DE (occurrence: DE)
  Receive Date: 20151001
  Receipt Date: 20160308
  Transmission Date: 20160525
  Serious: Yes (Hospitalization, Other)
  Sender: FDA-Public Use
  Company Number: PHHY2015DE017948

PATIENT
  Age: 66 Year
  Sex: Female

DRUGS (4)
  1. EXTAVIA [Suspect]
     Active Substance: INTERFERON BETA-1B
     Indication: MULTIPLE SCLEROSIS
     Dosage: 250 ?G/ML, QOD
     Route: 058
     Dates: start: 20150208, end: 2015
  2. EXTAVIA [Suspect]
     Active Substance: INTERFERON BETA-1B
     Dosage: 187.5 MCG/ML (0.75 ML), QOD
     Route: 058
     Dates: start: 2015
  3. EXTAVIA [Suspect]
     Active Substance: INTERFERON BETA-1B
     Dosage: 250 ?G/ML, QOD
     Route: 058
     Dates: start: 2015
  4. INSULIN [Concomitant]
     Active Substance: INSULIN NOS
     Indication: DIABETES MELLITUS
     Dosage: UNK
     Route: 065

REACTIONS (5)
  - Blood glucose increased [Recovering/Resolving]
  - Pain in extremity [Unknown]
  - Gait disturbance [Not Recovered/Not Resolved]
  - Pain [Recovering/Resolving]
  - Fall [Recovering/Resolving]

NARRATIVE: CASE EVENT DATE: 201502
